FAERS Safety Report 18538718 (Version 3)
Quarter: 2021Q1

REPORT INFORMATION
  Report Type: Report from Study
  Country: US (occurrence: US)
  Receive Date: 20201124
  Receipt Date: 20210208
  Transmission Date: 20210419
  Serious: No
  Sender: FDA-Public Use
  Company Number: NVSC2020US313487

PATIENT
  Age: 62 Year
  Sex: Male

DRUGS (4)
  1. ENTRESTO [Suspect]
     Active Substance: SACUBITRIL\VALSARTAN
     Dosage: 200 MG (97/103 MG)
     Route: 048
  2. ENTRESTO [Suspect]
     Active Substance: SACUBITRIL\VALSARTAN
     Dosage: 100 MG, UNKNOWN (49/51 MG)
     Route: 065
  3. ENTRESTO [Suspect]
     Active Substance: SACUBITRIL\VALSARTAN
     Indication: PRODUCT USED FOR UNKNOWN INDICATION
     Dosage: UNK UNK, BID
     Route: 048
  4. ENTRESTO [Suspect]
     Active Substance: SACUBITRIL\VALSARTAN
     Dosage: 50 MG, UNKNOWN (24/26 MG)
     Route: 065

REACTIONS (8)
  - Yawning [Unknown]
  - Oropharyngeal discomfort [Unknown]
  - Confusional state [Unknown]
  - Fatigue [Unknown]
  - Depression [Unknown]
  - Rhinorrhoea [Unknown]
  - Cough [Unknown]
  - Dyspnoea [Unknown]
